FAERS Safety Report 8886621 (Version 1)
Quarter: 2012Q4

REPORT INFORMATION
  Report Type: 
  Country: US (occurrence: US)
  Receive Date: 20121105
  Receipt Date: 20121105
  Transmission Date: 20130627
  Serious: No
  Sender: FDA-Public Use
  Company Number: US-PFIZER INC-2012274988

PATIENT
  Age: 75 Year
  Sex: Female

DRUGS (2)
  1. MOTRIN IB [Suspect]
     Indication: PAIN
     Dosage: UNK
     Route: 048
  2. ATENOLOL [Concomitant]
     Indication: HYPERTENSION
     Dosage: 100 mg once daily
     Route: 065

REACTIONS (2)
  - Sedation [Recovered/Resolved]
  - Therapeutic response increased [Unknown]
